FAERS Safety Report 16912883 (Version 2)
Quarter: 2019Q4

REPORT INFORMATION
  Report Type: Spontaneous
  Country: ES (occurrence: ES)
  Receive Date: 20191014
  Receipt Date: 20191211
  Transmission Date: 20200122
  Serious: Yes (Life-Threatening, Hospitalization, Other)
  Sender: FDA-Public Use
  Company Number: ES-AUROBINDO-AUR-APL-2019-066189

PATIENT
  Age: 47 Year
  Sex: Female

DRUGS (9)
  1. AMOXICILLIN+CLAVULANIC ACID [Suspect]
     Active Substance: AMOXICILLIN\CLAVULANIC ACID
     Indication: PRIMARY AMYLOIDOSIS
     Dosage: UNK, 3 TIMES A DAY (1 OT, Q8H)
     Route: 065
  2. CYCLOPHOSPHAMIDE. [Suspect]
     Active Substance: CYCLOPHOSPHAMIDE
     Indication: PRIMARY AMYLOIDOSIS
     Dosage: UNK, EVERY WEEK
     Route: 065
  3. ACTOCORTINA [Suspect]
     Active Substance: HYDROCORTISONE SODIUM PHOSPHATE
     Indication: PRIMARY AMYLOIDOSIS
     Dosage: 20 MILLIGRAM, ONCE A DAY
     Route: 065
  4. PROPOFOL. [Suspect]
     Active Substance: PROPOFOL
     Indication: ANALGESIC THERAPY
     Dosage: 2 PERCENT, 1 SCH/24H
     Route: 065
  5. VELCADE [Suspect]
     Active Substance: BORTEZOMIB
     Indication: PRIMARY AMYLOIDOSIS
     Dosage: UNK, 1 WEEK
     Route: 065
  6. SEPTRIN [Suspect]
     Active Substance: SULFAMETHOXAZOLE\TRIMETHOPRIM
     Indication: PRIMARY AMYLOIDOSIS
     Dosage: 1 UNK, 48 HOUR, 800/160
     Route: 065
  7. DOXYCYCLINE. [Suspect]
     Active Substance: DOXYCYCLINE
     Indication: PRIMARY AMYLOIDOSIS
     Dosage: UNK,  1 WEEK
     Route: 065
  8. ACICLOVIR [Suspect]
     Active Substance: ACYCLOVIR
     Indication: PRIMARY AMYLOIDOSIS
     Dosage: 250 MILLIGRAM, ONCE A DAY
     Route: 065
  9. DEXAMETHASONE. [Suspect]
     Active Substance: DEXAMETHASONE
     Indication: PRIMARY AMYLOIDOSIS
     Dosage: UNK, 1 WEEK
     Route: 065

REACTIONS (7)
  - Seizure [Unknown]
  - Off label use [Unknown]
  - Biliary colic [Unknown]
  - Pancreatitis [Unknown]
  - Hemiplegia [Unknown]
  - Respiratory arrest [Unknown]
  - Product use in unapproved indication [Unknown]
